FAERS Safety Report 26001570 (Version 2)
Quarter: 2025Q4

REPORT INFORMATION
  Report Type: Report from Study
  Country: None (occurrence: BR)
  Receive Date: 20251105
  Receipt Date: 20251114
  Transmission Date: 20260119
  Serious: Yes (Life-Threatening, Other)
  Sender: ALNYLAM PHARMACEUTICALS
  Company Number: BR-ALNYLAM PHARMACEUTICALS, INC.-ALN-2025-006695

PATIENT
  Age: 53 Year
  Weight: 64 kg

DRUGS (3)
  1. GIVLAARI [Suspect]
     Active Substance: GIVOSIRAN SODIUM
     Indication: Porphyria acute
     Dosage: UNK, MONTHLY (PRESENTATION: 189 MG/ML )
  2. GIVLAARI [Suspect]
     Active Substance: GIVOSIRAN SODIUM
     Dosage: 2.5 MILLIGRAM/KILOGRAM, MONTHLY
  3. MORPHINE [Concomitant]
     Active Substance: MORPHINE
     Indication: Pain
     Dosage: UNK UNK, Q4H
     Route: 065

REACTIONS (18)
  - Porphyria acute [Unknown]
  - Polyneuropathy [Unknown]
  - Bulbar palsy [Unknown]
  - Quadriplegia [Unknown]
  - Illness [Unknown]
  - Product storage error [Unknown]
  - Therapy interrupted [Unknown]
  - Malaise [Unknown]
  - Fatigue [Unknown]
  - Gait disturbance [Recovering/Resolving]
  - Autonomic nervous system imbalance [Unknown]
  - Hypoglycaemia [Unknown]
  - Mobility decreased [Unknown]
  - Weight increased [Unknown]
  - Condition aggravated [Unknown]
  - Drug effect less than expected [Unknown]
  - Crying [Unknown]
  - Inappropriate schedule of product administration [Unknown]
